FAERS Safety Report 11167435 (Version 1)
Quarter: 2015Q2

REPORT INFORMATION
  Report Type: Spontaneous
  Country: US (occurrence: None)
  Receive Date: 20150515
  Receipt Date: 20150515
  Transmission Date: 20150821
  Serious: Yes (Other)
  Sender: FDA-Public Use
  Company Number: 2015007202

PATIENT
  Age: 64 Year
  Sex: Female
  Weight: 107.9 kg

DRUGS (13)
  1. METHOTREXATE (METHOTREXATE) [Suspect]
     Active Substance: METHOTREXATE
     Indication: CROHN^S DISEASE
     Dates: start: 201410, end: 201411
  2. MAXZIDE (HYDROCHLOROTHIAZIDE, TRIAMTERENE) [Concomitant]
  3. VSL 3 (PROBIOTICS NOS) [Concomitant]
  4. CIMZIA [Suspect]
     Active Substance: CERTOLIZUMAB PEGOL
     Indication: CROHN^S DISEASE
     Dates: start: 201410, end: 201411
  5. NASACORT (TRIAMCINOLONE ACETONIDE) [Concomitant]
  6. TESSALON (BENZONATATE) [Concomitant]
  7. PANTOPRAZOLE (PANTOPRAZOLE) [Concomitant]
     Active Substance: PANTOPRAZOLE SODIUM
  8. HYDROCORTISONE (HYDROCORTISONE HYDROGEN SUCCINATE) [Concomitant]
  9. VITAMIN B12 (HYDROXOCOBALAMIN) [Concomitant]
  10. HUMIRA (ADALIMUMAB) SOLUTION FOR INJECTION IN PRE-FILLED SYRINGE [Concomitant]
  11. CLONIDINE (CLONIDINE HYDROCHLORIDE) [Concomitant]
  12. Z-PAK (AZITHROMYCIN) [Concomitant]
  13. SYNTHROID [Concomitant]
     Active Substance: LEVOTHYROXINE SODIUM

REACTIONS (4)
  - Abdominal discomfort [None]
  - Nausea [None]
  - Upper respiratory tract infection [None]
  - Pharyngitis streptococcal [None]

NARRATIVE: CASE EVENT DATE: 2014
